FAERS Safety Report 14303212 (Version 1)
Quarter: 2017Q4

REPORT INFORMATION
  Report Type: Spontaneous
  Country: CN (occurrence: CN)
  Receive Date: 20171219
  Receipt Date: 20171219
  Transmission Date: 20180321
  Serious: Yes (Other)
  Sender: FDA-Public Use
  Company Number: CN-ELI_LILLY_AND_COMPANY-CN201712003743

PATIENT
  Sex: Male

DRUGS (4)
  1. HUMULIN NOS [Suspect]
     Active Substance: INSULIN HUMAN
     Dosage: 8 UNK, AT NIGHT
     Route: 058
     Dates: start: 2016
  2. HUMULIN NOS [Suspect]
     Active Substance: INSULIN HUMAN
     Dosage: 14 UNK, EACH MORNING
     Route: 058
     Dates: start: 2016
  3. HUMULIN NOS [Suspect]
     Active Substance: INSULIN HUMAN
     Dosage: 18 UNK, AT NIGHT
     Route: 058
     Dates: start: 2016
  4. HUMULIN NOS [Suspect]
     Active Substance: INSULIN HUMAN
     Indication: DIABETES MELLITUS
     Dosage: 22 UNK, EACH MORNING
     Route: 058
     Dates: start: 2016

REACTIONS (2)
  - Blindness unilateral [Unknown]
  - Disease complication [Unknown]
